FAERS Safety Report 6468215-9 (Version None)
Quarter: 2009Q4

REPORT INFORMATION
  Report Type: 
  Country: None (occurrence: None)
  Receive Date: 20091130
  Receipt Date: 20091118
  Transmission Date: 20100525
  Serious: Yes (Hospitalization)
  Sender: FDA-Public Use
  Company Number: US-1171625

PATIENT
  Sex: Female

DRUGS (5)
  1. TRAVATAN [Suspect]
     Indication: GLAUCOMA
     Dosage: OPHTHALMIC
     Route: 047
  2. ACTOS [Suspect]
     Indication: TYPE 2 DIABETES MELLITUS
     Dosage: 15 MG ORAL
     Route: 048
     Dates: start: 19990101, end: 20091028
  3. LIPITOR [Concomitant]
  4. PLAVIX [Concomitant]
  5. ASPIRIN [Concomitant]

REACTIONS (2)
  - HYPERTENSION [None]
  - RENAL NEOPLASM [None]
